FAERS Safety Report 25831753 (Version 1)
Quarter: 2025Q3

REPORT INFORMATION
  Report Type: Spontaneous
  Country: EU (occurrence: EU)
  Receive Date: 20250922
  Receipt Date: 20250922
  Transmission Date: 20251021
  Serious: Yes (Hospitalization)
  Sender: PFIZER
  Company Number: None

PATIENT
  Age: 16 Year
  Sex: Male

DRUGS (10)
  1. CLINDAMYCIN PHOSPHATE [Suspect]
     Active Substance: CLINDAMYCIN PHOSPHATE
     Indication: Infection
     Dosage: 900 MG, 3X/DAY
     Route: 042
     Dates: start: 20250808, end: 20250813
  2. ACYCLOVIR [Suspect]
     Active Substance: ACYCLOVIR
     Indication: Infection
     Dosage: 600 MG, 4X/DAY
     Route: 042
     Dates: start: 20250812, end: 20250814
  3. METRONIDAZOLE [Suspect]
     Active Substance: METRONIDAZOLE
     Indication: Infection
     Dosage: 500 MG, 3X/DAY
     Route: 042
     Dates: start: 20250811, end: 20250816
  4. CEFOTAXIME [Suspect]
     Active Substance: CEFOTAXIME SODIUM
     Indication: Infection
     Dosage: 2 G, 4X/DAY
     Route: 042
     Dates: start: 20250808, end: 20250813
  5. TRIMEPRAZINE [Concomitant]
     Active Substance: TRIMEPRAZINE
     Indication: Mental disorder
     Dosage: 20 MG, 3X/DAY
     Route: 048
     Dates: start: 20250801, end: 20250804
  6. TRANXENE [Concomitant]
     Active Substance: CLORAZEPATE DIPOTASSIUM
     Indication: Mental disorder
     Dosage: 5 MG, 3X/DAY
     Route: 048
     Dates: start: 20250801, end: 20250805
  7. MELATONIN [Concomitant]
     Active Substance: MELATONIN
     Indication: Mental disorder
     Dosage: 2 MG, 1X/DAY
     Route: 048
     Dates: end: 20250814
  8. FYCOMPA [Concomitant]
     Active Substance: PERAMPANEL
     Indication: Mental disorder
     Dosage: 8 MG, 1X/DAY
     Route: 048
  9. VALPROATE SODIUM [Concomitant]
     Active Substance: VALPROATE SODIUM
     Indication: Mental disorder
     Dosage: 1 G, 2X/DAY
     Route: 048
  10. CLOBAZAM [Concomitant]
     Active Substance: CLOBAZAM
     Indication: Mental disorder
     Dosage: 10 MG, 1X/DAY
     Route: 048

REACTIONS (1)
  - Altered state of consciousness [Recovering/Resolving]

NARRATIVE: CASE EVENT DATE: 20250812
